FAERS Safety Report 18386202 (Version 7)
Quarter: 2020Q4

REPORT INFORMATION
  Report Type: Spontaneous
  Country: US (occurrence: US)
  Receive Date: 20201015
  Receipt Date: 20201221
  Transmission Date: 20210114
  Serious: Yes (Hospitalization)
  Sender: FDA-Public Use
  Company Number: US-CELGENEUS-USA-20201003264

PATIENT
  Age: 84 Year
  Sex: Male
  Weight: 79.9 kg

DRUGS (3)
  1. METOPROLOL. [Concomitant]
     Active Substance: METOPROLOL
     Indication: PRODUCT USED FOR UNKNOWN INDICATION
     Route: 065
  2. REVLIMID [Suspect]
     Active Substance: LENALIDOMIDE
     Indication: PLASMA CELL MYELOMA
     Dosage: 10 MILLIGRAM
     Route: 048
     Dates: start: 20200706
  3. REVLIMID [Suspect]
     Active Substance: LENALIDOMIDE
     Dosage: 10 MILLIGRAM
     Route: 048
     Dates: start: 2020

REACTIONS (16)
  - Limb injury [Not Recovered/Not Resolved]
  - Skin laceration [Unknown]
  - Dizziness [Not Recovered/Not Resolved]
  - Loss of consciousness [Not Recovered/Not Resolved]
  - Dehydration [Not Recovered/Not Resolved]
  - Fall [Unknown]
  - Hypotension [Unknown]
  - Platelet count decreased [Unknown]
  - Decreased appetite [Not Recovered/Not Resolved]
  - Renal disorder [Unknown]
  - Weight decreased [Not Recovered/Not Resolved]
  - Gait inability [Unknown]
  - Chronic obstructive pulmonary disease [Not Recovered/Not Resolved]
  - Bronchitis [Unknown]
  - Asthenia [Unknown]
  - White blood cell count abnormal [Not Recovered/Not Resolved]

NARRATIVE: CASE EVENT DATE: 2020
